FAERS Safety Report 15208720 (Version 1)
Quarter: 2018Q3

REPORT INFORMATION
  Report Type: Spontaneous
  Country: US (occurrence: US)
  Receive Date: 20180727
  Receipt Date: 20180727
  Transmission Date: 20181010
  Serious: Yes (Hospitalization)
  Sender: FDA-Public Use
  Company Number: US-ASTRAZENECA-2018SE94288

PATIENT
  Age: 16 Month
  Sex: Female

DRUGS (3)
  1. OMEPRAZOLE. [Suspect]
     Active Substance: OMEPRAZOLE
     Dosage: COMPOUNDED OMEPRAZOLE SUSPENSION 2 MG/ML HAD BEEN GIVEN WITH AN ESTIMATED TOTAL DOSE OF 140 MG
     Route: 048
  2. TALC [Suspect]
     Active Substance: TALC
     Dosage: THE OMEPRAZOLE CAPSULES NOTABLY CONTAINED TALC AS AN INACTIVE INGREDIENT
     Route: 048
  3. SODIUM BICARBONATE. [Suspect]
     Active Substance: SODIUM BICARBONATE
     Dosage: 18 OMEPRAZOLE CAPSULES HAD BEEN OPENED AND MIXED WITH STERILE WATER WITH 15.12 G BICARBONATE
     Route: 048

REACTIONS (10)
  - Hypokalaemia [Recovered/Resolved]
  - Product physical issue [Unknown]
  - Diarrhoea [Recovered/Resolved]
  - Aspiration [Recovered/Resolved]
  - Retching [Recovered/Resolved]
  - Accidental overdose [Recovered/Resolved]
  - Hypernatraemia [Recovered/Resolved]
  - Respiratory rate increased [Recovered/Resolved]
  - Electrocardiogram QT prolonged [Recovered/Resolved]
  - Metabolic alkalosis [Recovered/Resolved]
